FAERS Safety Report 7321788-6 (Version None)
Quarter: 2011Q1

REPORT INFORMATION
  Report Type: 
  Country: None (occurrence: None)
  Receive Date: 20110228
  Receipt Date: 20110221
  Transmission Date: 20110831
  Serious: Yes (Hospitalization, Other)
  Sender: FDA-Public Use
  Company Number: US-PFIZER INC-2011037862

PATIENT
  Age: 55 Year
  Sex: Male
  Weight: 74.83 kg

DRUGS (2)
  1. NEURONTIN [Suspect]
     Indication: NEURALGIA
     Dosage: 300 MG, 3X/DAY
     Route: 048
     Dates: start: 20101201
  2. NEURONTIN [Suspect]
     Dosage: 300 MG, 9X/ DAY

REACTIONS (7)
  - HOT FLUSH [None]
  - PAIN IN EXTREMITY [None]
  - HYPERHIDROSIS [None]
  - PARAESTHESIA [None]
  - SPINAL FRACTURE [None]
  - PRESYNCOPE [None]
  - BLOOD PRESSURE INCREASED [None]
